FAERS Safety Report 9373792 (Version 1)
Quarter: 2013Q2

REPORT INFORMATION
  Report Type: Report from Study
  Country: HU (occurrence: HU)
  Receive Date: 20130628
  Receipt Date: 20130628
  Transmission Date: 20140414
  Serious: Yes (Death)
  Sender: FDA-Public Use
  Company Number: HU-BRISTOL-MYERS SQUIBB COMPANY-19022854

PATIENT
  Age: 68 Year
  Sex: Male

DRUGS (21)
  1. CARBOPLATIN [Suspect]
     Indication: NON-SMALL CELL LUNG CANCER
     Dosage: 1 DF: 6 AUC
     Route: 042
     Dates: start: 20130419, end: 20130419
  2. PACLITAXEL [Suspect]
     Indication: NON-SMALL CELL LUNG CANCER
     Route: 042
     Dates: start: 20130419, end: 20130419
  3. AMINOCAPROIC ACID [Concomitant]
     Indication: LUNG NEOPLASM MALIGNANT
  4. DICINONE [Concomitant]
     Indication: LUNG NEOPLASM MALIGNANT
  5. POTASSIUM CHLORIDE [Concomitant]
     Indication: PROPHYLAXIS
     Dates: start: 201111
  6. CHINOTAL [Concomitant]
     Indication: ARTERIOSCLEROSIS
     Dates: start: 201111
  7. DIAPREL [Concomitant]
     Dates: start: 201111
  8. SPIRIVA [Concomitant]
     Dosage: CAPS
     Dates: start: 201111
  9. ASTRIX [Concomitant]
     Indication: ARTERIOSCLEROSIS
     Dates: start: 201111
  10. BISOBLOCK [Concomitant]
     Indication: HYPERTENSION
     Dates: start: 201111
  11. PERINDOPRIL ERBUMINE + INDAPAMIDE [Concomitant]
     Indication: HYPERTENSION
     Dosage: 1 DF: 1 TAB
     Dates: start: 201111
  12. ATORIS [Concomitant]
     Indication: ARTERIOSCLEROSIS
     Dates: start: 201111
  13. FUROSEMIDE [Concomitant]
     Indication: HYPERTENSION
     Dates: start: 201111
  14. GERODORM [Concomitant]
     Indication: INSOMNIA
     Dosage: 1 DF: 1 TAB
     Dates: start: 201111
  15. ENTEROBENE [Concomitant]
     Indication: DIARRHOEA
     Dates: start: 20130422, end: 20130425
  16. FILGRASTIM [Concomitant]
     Indication: NEUTROPENIA
     Dosage: 1 DF: 48 MILLION IU
     Dates: start: 20130426, end: 20130430
  17. SALSALATE [Concomitant]
     Indication: DIARRHOEA
     Dates: start: 20130425, end: 20130425
  18. SOLU-MEDROL [Concomitant]
     Indication: DIARRHOEA
     Dosage: 19APR2013-19APR2013?25APR2013-25APR2013
     Dates: start: 20130419, end: 20130419
  19. ONDANSETRON [Concomitant]
     Indication: PREMEDICATION
     Dates: start: 20130419, end: 20130419
  20. LORATADINE [Concomitant]
     Indication: PREMEDICATION
     Dates: start: 20130419, end: 20130419
  21. FAMOTIDINE [Concomitant]
     Indication: PREMEDICATION
     Dates: start: 20130419, end: 20130419

REACTIONS (1)
  - Megacolon [Fatal]
